FAERS Safety Report 15560202 (Version 6)
Quarter: 2018Q4

REPORT INFORMATION
  Report Type: Spontaneous
  Country: IE (occurrence: IE)
  Receive Date: 20181029
  Receipt Date: 20181203
  Transmission Date: 20190205
  Serious: Yes (Hospitalization, Other)
  Sender: FDA-Public Use
  Company Number: IE-MYLANLABS-2017M1080791

PATIENT
  Age: 49 Year
  Sex: Male

DRUGS (1)
  1. CLOZARIL [Suspect]
     Active Substance: CLOZAPINE
     Indication: SCHIZOPHRENIA
     Dosage: UNK
     Route: 048
     Dates: start: 20171128, end: 201811

REACTIONS (9)
  - Differential white blood cell count abnormal [Unknown]
  - Orthostatic hypotension [Unknown]
  - White blood cell count decreased [Recovered/Resolved]
  - Eosinophil count increased [Recovered/Resolved]
  - Neutropenia [Recovered/Resolved]
  - Hypotension [Unknown]
  - Hospitalisation [Unknown]
  - Haemoglobin decreased [Recovering/Resolving]
  - Tremor [Unknown]

NARRATIVE: CASE EVENT DATE: 20171219
